FAERS Safety Report 18005682 (Version 1)
Quarter: 2020Q3

REPORT INFORMATION
  Report Type: Spontaneous
  Country: US (occurrence: US)
  Receive Date: 20200709
  Receipt Date: 20200709
  Transmission Date: 20201103
  Serious: No
  Sender: FDA-Public Use
  Company Number: None

PATIENT
  Age: 87 Year
  Sex: Male

DRUGS (10)
  1. FERROUS SULFATE. [Concomitant]
     Active Substance: FERROUS SULFATE
  2. PROAIR HFA [Concomitant]
     Active Substance: ALBUTEROL SULFATE
  3. TAMSULOSIN [Concomitant]
     Active Substance: TAMSULOSIN
  4. LEVETIRACETAM. [Concomitant]
     Active Substance: LEVETIRACETAM
  5. METFORMIN [Concomitant]
     Active Substance: METFORMIN HYDROCHLORIDE
  6. LYNPARZA [Suspect]
     Active Substance: OLAPARIB
     Indication: LARYNGEAL CANCER
     Route: 048
     Dates: start: 20200612
  7. GLIPIZIDE. [Concomitant]
     Active Substance: GLIPIZIDE
  8. ZYTIGA [Concomitant]
     Active Substance: ABIRATERONE ACETATE
  9. ASPIRIN. [Concomitant]
     Active Substance: ASPIRIN
  10. PREDNISONE. [Concomitant]
     Active Substance: PREDNISONE

REACTIONS (2)
  - Seizure [None]
  - Muscular weakness [None]
